FAERS Safety Report 6077194-8 (Version None)
Quarter: 2009Q1

REPORT INFORMATION
  Report Type: 
  Country: None (occurrence: None)
  Receive Date: 20090213
  Receipt Date: 20090206
  Transmission Date: 20090719
  Serious: Yes (Other)
  Sender: FDA-Public Use
  Company Number: BR-PFIZER INC-2006128443

PATIENT

DRUGS (8)
  1. LIPITOR [Suspect]
     Indication: BLOOD TRIGLYCERIDES
     Route: 048
     Dates: start: 20060801, end: 20060914
  2. LIPITOR [Suspect]
     Indication: HYPERCHOLESTEROLAEMIA
  3. DIAZEPAM [Concomitant]
  4. RIVOTRIL [Concomitant]
     Indication: DEPRESSION
     Route: 048
     Dates: start: 20050101
  5. EUTHYROX [Concomitant]
     Route: 048
  6. ALL OTHER THERAPEUTIC PRODUCTS [Concomitant]
     Route: 048
  7. SOMADRIL COMP. [Concomitant]
     Route: 048
  8. CLARITIN-D [Concomitant]
     Route: 048

REACTIONS (7)
  - ALOPECIA [None]
  - CAROTID ARTERIOSCLEROSIS [None]
  - CONSTIPATION [None]
  - DERMATITIS CONTACT [None]
  - FLATULENCE [None]
  - HYPERSENSITIVITY [None]
  - HYPOGLYCAEMIA [None]
